FAERS Safety Report 8068408-3 (Version None)
Quarter: 2012Q1

REPORT INFORMATION
  Report Type: 
  Country: None (occurrence: None)
  Receive Date: 20120124
  Receipt Date: 20111025
  Transmission Date: 20120608
  Serious: No
  Sender: FDA-Public Use
  Company Number: US-AMGEN-USASP2011055225

PATIENT
  Age: 74 Year
  Sex: Female

DRUGS (4)
  1. VITAMIN TAB [Concomitant]
     Dosage: UNK
  2. CALCIUM [Concomitant]
     Dosage: UNK
  3. PROLIA [Suspect]
     Indication: OSTEOPOROSIS POSTMENOPAUSAL
     Dosage: UNK UNK, Q6MO
     Dates: start: 20111010
  4. VITAMIN D [Concomitant]
     Dosage: UNK

REACTIONS (2)
  - INFLAMMATION [None]
  - PRURITUS [None]
